FAERS Safety Report 10559159 (Version 1)
Quarter: 2014Q3

REPORT INFORMATION
  Report Type: Spontaneous
  Country: US (occurrence: None)
  Receive Date: 20140801
  Receipt Date: 20140801
  Transmission Date: 20150326
  Serious: No
  Sender: FDA-Public Use
  Company Number: US-BIOTEST-T 182/14

PATIENT

DRUGS (1)
  1. BIVIGAM [Suspect]
     Active Substance: HUMAN IMMUNOGLOBULIN G
     Route: 042

REACTIONS (2)
  - Sinusitis [None]
  - Pruritus [None]
